FAERS Safety Report 5338904-8 (Version None)
Quarter: 2007Q2

REPORT INFORMATION
  Report Type: 
  Country: None (occurrence: None)
  Receive Date: 20070404
  Receipt Date: 20060430
  Transmission Date: 20071010
  Serious: Yes (Life-Threatening, Hospitalization)
  Sender: FDA-Public Use
  Company Number: 060403-0000316

PATIENT

DRUGS (2)
  1. INDOCIN I.V. [Suspect]
     Indication: PATENT DUCTUS ARTERIOSUS
     Dosage: 1 MG; IV
     Route: 042
     Dates: start: 20060313
  2. INDOCIN I.V. [Suspect]

REACTIONS (1)
  - DRUG INEFFECTIVE [None]
